FAERS Safety Report 25995368 (Version 1)
Quarter: 2025Q4

REPORT INFORMATION
  Report Type: Spontaneous
  Country: US (occurrence: None)
  Receive Date: 20251101
  Receipt Date: 20251101
  Transmission Date: 20260118
  Serious: No
  Sender: FDA-CTU
  Company Number: None

PATIENT
  Sex: Female

DRUGS (1)
  1. RINVOQ [Suspect]
     Active Substance: UPADACITINIB
     Indication: Psoriasis
     Dosage: 15 MG DAILY ORAL?
     Route: 048
     Dates: start: 20250925

REACTIONS (3)
  - Rash pruritic [None]
  - Feeling hot [None]
  - Therapy cessation [None]
